FAERS Safety Report 16993382 (Version 2)
Quarter: 2021Q3

REPORT INFORMATION
  Report Type: Spontaneous
  Country: DE (occurrence: DE)
  Receive Date: 20191105
  Receipt Date: 20210816
  Transmission Date: 20211014
  Serious: Yes (Other)
  Sender: FDA-Public Use
  Company Number: DE-AUROBINDO-AUR-APL-2019-066878

PATIENT
  Age: 6 Year
  Sex: Female

DRUGS (4)
  1. CLOTRIMAZOLE. [Concomitant]
     Active Substance: CLOTRIMAZOLE
     Indication: BODY TINEA
     Dosage: UNK
     Route: 061
  2. CLOTRIMAZOLE. [Concomitant]
     Active Substance: CLOTRIMAZOLE
     Indication: TRICHOPHYTOSIS
  3. TERBINAFINE TABLET [Suspect]
     Active Substance: TERBINAFINE
     Indication: BODY TINEA
     Dosage: 125 MILLIGRAM, ONCE A DAY
     Route: 048
  4. TERBINAFINE TABLET [Suspect]
     Active Substance: TERBINAFINE
     Indication: TRICHOPHYTOSIS

REACTIONS (3)
  - Panic attack [Unknown]
  - Migraine [Unknown]
  - Pyrexia [Unknown]
